FAERS Safety Report 8776970 (Version 1)
Quarter: 2012Q4

REPORT INFORMATION
  Report Type: 
  Country: US (occurrence: US)
  Receive Date: 20120911
  Receipt Date: 20120911
  Transmission Date: 20130627
  Serious: Yes (Hospitalization)
  Sender: FDA-Public Use
  Company Number: US-GLAXOSMITHKLINE-B0717140A

PATIENT
  Age: 63 Year
  Sex: Male

DRUGS (1)
  1. ROSIGLITAZONE MALEATE [Suspect]
     Indication: DIABETES MELLITUS
     Dosage: 4MG Per day
     Route: 048
     Dates: start: 2001, end: 200708

REACTIONS (4)
  - Myocardial infarction [Not Recovered/Not Resolved]
  - Catheterisation cardiac [Unknown]
  - Libido decreased [Unknown]
  - Weight increased [Unknown]
